FAERS Safety Report 8360690-8 (Version None)
Quarter: 2012Q2

REPORT INFORMATION
  Report Type: 
  Country: None (occurrence: None)
  Receive Date: 20120515
  Receipt Date: 20120507
  Transmission Date: 20120825
  Serious: Yes (Hospitalization, Other)
  Sender: FDA-Public Use
  Company Number: US-ACTELION-A-CH2012-65549

PATIENT
  Age: 4 Year
  Sex: Male

DRUGS (3)
  1. TRACLEER [Suspect]
     Indication: PULMONARY ARTERIAL HYPERTENSION
     Dosage: UNK
     Route: 048
  2. SILDENAFIL [Concomitant]
  3. EPOPROSTENOL SODIUM [Concomitant]

REACTIONS (10)
  - PULMONARY ARTERIAL HYPERTENSION [None]
  - PLEURAL EFFUSION [None]
  - ATELECTASIS [None]
  - DISEASE PROGRESSION [None]
  - CHEST TUBE INSERTION [None]
  - COMPLICATIONS OF TRANSPLANTED LUNG [None]
  - PLEURAL ADHESION [None]
  - PERICARDITIS ADHESIVE [None]
  - HEART AND LUNG TRANSPLANT [None]
  - THORACIC CAVITY DRAINAGE [None]
